FAERS Safety Report 15854404 (Version 2)
Quarter: 2019Q1

REPORT INFORMATION
  Report Type: Spontaneous
  Country: BR (occurrence: BR)
  Receive Date: 20190122
  Receipt Date: 20190129
  Transmission Date: 20190417
  Serious: No
  Sender: FDA-Public Use
  Company Number: BR-PFIZER INC-2019021215

PATIENT
  Age: 64 Year
  Sex: Female

DRUGS (2)
  1. GEODON [Suspect]
     Active Substance: ZIPRASIDONE HYDROCHLORIDE\ZIPRASIDONE MESYLATE
     Indication: BIPOLAR DISORDER
     Dosage: 200 MG, DAILY (1 TABLET OF 40MG IN THE LUNCH AND 4 TABLETS OF 40MG OR 2 TABLETS OF 80MG AT NIGHT)
     Route: 048
  2. CARBOLITIUM [Concomitant]
     Active Substance: LITHIUM CARBONATE
     Dosage: UNK

REACTIONS (1)
  - Prescribed overdose [Unknown]
